FAERS Safety Report 4764295-7 (Version None)
Quarter: 2005Q3

REPORT INFORMATION
  Report Type: 
  Country: None (occurrence: None)
  Receive Date: 20050906
  Receipt Date: 20050824
  Transmission Date: 20060218
  Serious: Yes (Life-Threatening, Hospitalization)
  Sender: FDA-Public Use
  Company Number: PHHO2004US15856

PATIENT
  Age: 89 Year
  Sex: Male

DRUGS (9)
  1. VISUDYNE [Suspect]
     Indication: MACULAR DEGENERATION
  2. CONTRAST MEDIA [Suspect]
     Indication: CATHETERISATION CARDIAC
     Dates: start: 20041025, end: 20041025
  3. GLUCOTROL [Concomitant]
  4. SELOKEN/TOPROL [Concomitant]
  5. AVAPRO [Concomitant]
  6. ELAVIL/ENDEP [Concomitant]
  7. PLAVIX [Concomitant]
  8. CELEBREX [Concomitant]
  9. CARDURA [Concomitant]

REACTIONS (6)
  - BLOOD CREATININE INCREASED [None]
  - CONTRAST MEDIA REACTION [None]
  - CORONARY ARTERY STENOSIS [None]
  - HYPERTENSION [None]
  - MYOCARDIAL INFARCTION [None]
  - VENTRICULAR HYPOKINESIA [None]
